FAERS Safety Report 5025429-2 (Version None)
Quarter: 2006Q2

REPORT INFORMATION
  Report Type: 
  Country: None (occurrence: None)
  Receive Date: 20060608
  Receipt Date: 20060526
  Transmission Date: 20061013
  Serious: Yes (Other)
  Sender: FDA-Public Use
  Company Number: 2006070047

PATIENT
  Age: 42 Year
  Sex: Female
  Weight: 65.7716 kg

DRUGS (6)
  1. NEURONTIN [Suspect]
     Indication: NEURALGIA
     Dosage: 1800 MG (DAILY)
     Dates: start: 20060101
  2. ZOCOR [Concomitant]
  3. LASIX [Concomitant]
  4. PREDNISONE TAB [Concomitant]
  5. POTASSIUM (POTASSIUM) [Concomitant]
  6. PREVACID [Concomitant]

REACTIONS (6)
  - DIARRHOEA [None]
  - FACE OEDEMA [None]
  - FLUID RETENTION [None]
  - HAEMORRHAGE [None]
  - JOINT SWELLING [None]
  - SYSTEMIC LUPUS ERYTHEMATOSUS [None]
